FAERS Safety Report 5939501-3 (Version None)
Quarter: 2008Q4

REPORT INFORMATION
  Report Type: 
  Country: None (occurrence: None)
  Receive Date: 20081030
  Receipt Date: 20081016
  Transmission Date: 20090506
  Serious: Yes (Hospitalization)
  Sender: FDA-Public Use
  Company Number: 2008PL000162

PATIENT
  Age: 32 Year
  Sex: Male

DRUGS (5)
  1. IMURAN [Suspect]
     Indication: CROHN'S DISEASE
     Dosage: 100 MG; QD
  2. PREDNISONE TAB [Concomitant]
  3. CEFAZOLIN SODIUM [Concomitant]
  4. CEFEPIME HYDRCHLORIDE4 [Concomitant]
  5. VANCOMYCIN [Concomitant]

REACTIONS (6)
  - ACUTE FEBRILE NEUTROPHILIC DERMATOSIS [None]
  - ARTHRALGIA [None]
  - CELLULITIS [None]
  - DRUG INTOLERANCE [None]
  - OEDEMA PERIPHERAL [None]
  - WHITE BLOOD CELL COUNT INCREASED [None]
